FAERS Safety Report 4494835-7 (Version None)
Quarter: 2004Q4

REPORT INFORMATION
  Report Type: 
  Country: None (occurrence: None)
  Receive Date: 20041103
  Receipt Date: 20041022
  Transmission Date: 20050328
  Serious: Yes (Hospitalization)
  Sender: FDA-Public Use
  Company Number: MK200410-0233-1

PATIENT
  Age: 76 Year
  Sex: Female

DRUGS (6)
  1. TRAMADOL HCL [Suspect]
     Indication: PAIN
     Dosage: 50 MG, QID
  2. PERINDOPRIL [Concomitant]
  3. QUININE SULFATE [Concomitant]
  4. RANITIDINE [Concomitant]
  5. CALCIUM CARBONATE [Concomitant]
  6. RISEDRONATE [Concomitant]

REACTIONS (2)
  - BLOOD SODIUM DECREASED [None]
  - INAPPROPRIATE ANTIDIURETIC HORMONE SECRETION [None]
